FAERS Safety Report 18432992 (Version 1)
Quarter: 2020Q4

REPORT INFORMATION
  Report Type: Spontaneous
  Country: JP (occurrence: JP)
  Receive Date: 20201027
  Receipt Date: 20201027
  Transmission Date: 20210114
  Serious: Yes (Hospitalization)
  Sender: FDA-Public Use
  Company Number: JP-ENDO PHARMACEUTICALS INC-2020-006949

PATIENT
  Age: 85 Year
  Sex: Female

DRUGS (4)
  1. LEVETIRACETAM. [Suspect]
     Active Substance: LEVETIRACETAM
     Indication: SEIZURE PROPHYLAXIS
     Dosage: 1000 MG, DAILY, STARTED DAY 27 AND DISCONTINUED DAY 65
     Route: 065
  2. GLYCEROL [Concomitant]
     Active Substance: GLYCERIN
     Dosage: 600 MG, DAILY, STARTED ON DAY 27 AND DISCONTINUED ON DAY 45
     Route: 065
  3. GLYCEROL [Concomitant]
     Active Substance: GLYCERIN
     Indication: PREOPERATIVE CARE
     Dosage: 600 MG, DAILY, STARTED ON DAY 12 AND DISCONTINUED ON DAY 23
     Route: 065
  4. PREDNISOLONE. [Concomitant]
     Active Substance: PREDNISOLONE
     Indication: PREOPERATIVE CARE
     Dosage: 10 MG, DAILY, STARTED ON DAY 27 AND DISCONTINUED ON DAY 54
     Route: 065

REACTIONS (1)
  - Interstitial lung disease [Recovering/Resolving]
